FAERS Safety Report 13885430 (Version 1)
Quarter: 2017Q3

REPORT INFORMATION
  Report Type: Spontaneous
  Country: US (occurrence: US)
  Receive Date: 20170821
  Receipt Date: 20170821
  Transmission Date: 20171127
  Serious: Yes (Hospitalization, Other)
  Sender: FDA-Public Use
  Company Number: US-PFIZER INC-2017356397

PATIENT
  Age: 27 Year
  Sex: Male
  Weight: 32 kg

DRUGS (4)
  1. KEPPRA [Concomitant]
     Active Substance: LEVETIRACETAM
     Dosage: 1000 MG, 2X/DAY
     Dates: start: 2014
  2. FLUVOXAMINE /00615202/ [Concomitant]
     Active Substance: FLUVOXAMINE MALEATE
     Dosage: 150 MG, 1X/DAY
     Dates: start: 2014
  3. GEODON [Suspect]
     Active Substance: ZIPRASIDONE HYDROCHLORIDE\ZIPRASIDONE MESYLATE
     Dosage: UNK
     Dates: start: 2014
  4. GEODON [Suspect]
     Active Substance: ZIPRASIDONE HYDROCHLORIDE\ZIPRASIDONE MESYLATE
     Dosage: 580 MG, DAILY(140MG IN THE MORNING, 80MG AT NOON, AND 360MG AT NIGHT)

REACTIONS (6)
  - Pneumonia [Not Recovered/Not Resolved]
  - Bradycardia [Not Recovered/Not Resolved]
  - Blood potassium decreased [Unknown]
  - Blood urea increased [Unknown]
  - Prescribed overdose [Unknown]
  - Hypotension [Unknown]

NARRATIVE: CASE EVENT DATE: 20170813
